FAERS Safety Report 5053373-3 (Version None)
Quarter: 2006Q3

REPORT INFORMATION
  Report Type: 
  Country: None (occurrence: None)
  Receive Date: 20060712
  Receipt Date: 20060621
  Transmission Date: 20061208
  Serious: Yes (Hospitalization)
  Sender: FDA-Public Use
  Company Number: BR200606005294

PATIENT
  Age: 66 Year
  Sex: Female
  Weight: 50 kg

DRUGS (7)
  1. FORTEO [Suspect]
     Indication: OSTEOPOROSIS
     Dosage: 20 UG, (DAILY) 1/D, SUBCUTANEOUS
     Route: 058
     Dates: start: 20060519
  2. FORTEO [Concomitant]
  3. AMIODARONE HCL [Concomitant]
  4. CALCIUM GLUCONATE [Concomitant]
  5. METFORMIN HCL [Concomitant]
  6. PURAN T4 (LEVOTHYROXINE SODIUM) [Concomitant]
  7. VITAMINS [Concomitant]

REACTIONS (3)
  - DIABETES MELLITUS [None]
  - HYPERGLYCAEMIA [None]
  - SYNCOPE [None]
